FAERS Safety Report 10627904 (Version 1)
Quarter: 2014Q4

REPORT INFORMATION
  Report Type: Spontaneous
  Country: US (occurrence: None)
  Receive Date: 20141203
  Receipt Date: 20141203
  Transmission Date: 20150529
  Serious: Yes (Other)
  Sender: FDA-Public Use
  Company Number: None

PATIENT
  Age: 55 Year
  Sex: Female
  Weight: 77.11 kg

DRUGS (7)
  1. BOTOX COSMETIC [Suspect]
     Active Substance: ONABOTULINUMTOXINA
     Indication: SKIN COSMETIC PROCEDURE
     Dosage: WHEN NEEDED COSMETICALLY
     Dates: start: 2010, end: 201301
  2. PILOCARPINE [Concomitant]
     Active Substance: PILOCARPINE
  3. DIAMOX SEQUELS [Concomitant]
     Active Substance: ACETAZOLAMIDE
  4. SERAX [Concomitant]
     Active Substance: OXAZEPAM
  5. ZYRTEC FOR ALLERGIEC [Concomitant]
  6. DYAZIDE [Concomitant]
     Active Substance: HYDROCHLOROTHIAZIDE\TRIAMTERENE
  7. EQUATE } VISION FORMULA 50+ [Concomitant]

REACTIONS (3)
  - Glaucoma [None]
  - Vision blurred [None]
  - Visual impairment [None]

NARRATIVE: CASE EVENT DATE: 2010
